FAERS Safety Report 14248682 (Version 1)
Quarter: 2017Q4

REPORT INFORMATION
  Report Type: Spontaneous
  Country: US (occurrence: US)
  Receive Date: 20171203
  Receipt Date: 20171203
  Transmission Date: 20180321
  Serious: Yes (Other)
  Sender: FDA-Public Use
  Company Number: None

PATIENT
  Sex: Male

DRUGS (1)
  1. DEXTROAMPHET SACCHARAT, AMPHET ASPARTATE, DEXTROAMPHET SULFATE AND AMPHET SULFAT [Suspect]
     Active Substance: AMPHETAMINE ASPARTATE\AMPHETAMINE SULFATE\DEXTROAMPHETAMINE SACCHARATE\DEXTROAMPHETAMINE SULFATE
     Indication: ATTENTION DEFICIT/HYPERACTIVITY DISORDER
     Dosage: ?          QUANTITY:30 TABLET(S);?
     Route: 048
     Dates: start: 20171101, end: 20171129

REACTIONS (19)
  - Product substitution issue [None]
  - Hypertension [None]
  - Stomatitis [None]
  - Depression [None]
  - Anxiety [None]
  - Disturbance in attention [None]
  - Muscle twitching [None]
  - Mania [None]
  - Feeling abnormal [None]
  - Hallucination, auditory [None]
  - Agitation [None]
  - Product counterfeit [None]
  - Therapy cessation [None]
  - Paranoia [None]
  - Feeling jittery [None]
  - Fatigue [None]
  - Heart rate increased [None]
  - Bruxism [None]
  - Dyskinesia [None]

NARRATIVE: CASE EVENT DATE: 20171103
